FAERS Safety Report 7762917-X (Version None)
Quarter: 2011Q3

REPORT INFORMATION
  Report Type: 
  Country: None (occurrence: None)
  Receive Date: 20110920
  Receipt Date: 20110912
  Transmission Date: 20111222
  Serious: Yes (Hospitalization, Other)
  Sender: FDA-Public Use
  Company Number: PHHY2011PL68827

PATIENT
  Age: 75 Year
  Sex: Male

DRUGS (4)
  1. TRAZODONE HYDROCHLORIDE [Interacting]
     Indication: INSOMNIA
     Dosage: 37.5 MG/DAY
  2. TRAZODONE HYDROCHLORIDE [Interacting]
     Dosage: 75 MG/DAY OVER 3 DAYS
  3. HALOPERIDOL [Suspect]
     Indication: AGGRESSION
     Dosage: 2 MG/DAY
  4. PROMAZINE HYDROCHLORIDE [Interacting]
     Indication: AGGRESSION
     Dosage: 100 MG/DAY

REACTIONS (9)
  - TACHYCARDIA [None]
  - PYREXIA [None]
  - CEREBRAL ATROPHY [None]
  - HYPERHIDROSIS [None]
  - MUSCLE RIGIDITY [None]
  - DEPRESSED LEVEL OF CONSCIOUSNESS [None]
  - PARKINSONISM [None]
  - INSOMNIA [None]
  - SEROTONIN SYNDROME [None]
